FAERS Safety Report 4640904-8 (Version None)
Quarter: 2005Q2

REPORT INFORMATION
  Report Type: 
  Country: None (occurrence: None)
  Receive Date: 20050324
  Receipt Date: 20050118
  Transmission Date: 20051028
  Serious: Yes (Death)
  Sender: FDA-Public Use
  Company Number: 211849

PATIENT
  Age: 76 Year
  Sex: Male
  Weight: 86.8 kg

DRUGS (6)
  1. AVASTIN [Suspect]
     Indication: COLON CANCER METASTATIC
     Dosage: 445 MG, Q2W, INTRAVENOUS
     Route: 042
     Dates: start: 20040707
  2. FLUOROURACIL [Suspect]
     Indication: COLON CANCER METASTATIC
     Dates: start: 20040707
  3. OXALIPLATIN(OXALIPLATIN) [Suspect]
     Indication: COLON CANCER METASTATIC
  4. LEUCOVORIN CALCIUM [Suspect]
     Indication: COLON CANCER METASTATIC
     Dates: start: 20040707
  5. ASPIRIN [Concomitant]
  6. ZOCOR [Concomitant]

REACTIONS (1)
  - EMBOLISM [None]
